FAERS Safety Report 8515140-5 (Version None)
Quarter: 2012Q3

REPORT INFORMATION
  Report Type: 
  Country: None (occurrence: None)
  Receive Date: 20120717
  Receipt Date: 20120710
  Transmission Date: 20120928
  Serious: Yes (Hospitalization)
  Sender: FDA-Public Use
  Company Number: US-GLAXOSMITHKLINE-A0845707A

PATIENT
  Age: 68 Year
  Sex: Female

DRUGS (4)
  1. AVANDIA [Suspect]
     Indication: TYPE 2 DIABETES MELLITUS
     Dosage: 8MG PER DAY
     Route: 048
     Dates: start: 19990101, end: 20070101
  2. ADVAIR DISKUS 100/50 [Concomitant]
  3. SYNTHROID [Concomitant]
  4. UNKNOWN [Concomitant]

REACTIONS (8)
  - CARDIAC ARREST [None]
  - CARDIAC FAILURE CONGESTIVE [None]
  - CATARACT [None]
  - PNEUMONIA [None]
  - ASTHENIA [None]
  - VISION BLURRED [None]
  - GLAUCOMA [None]
  - PHOTOPHOBIA [None]
